FAERS Safety Report 21337741 (Version 3)
Quarter: 2022Q4

REPORT INFORMATION
  Report Type: Spontaneous
  Country: US (occurrence: US)
  Receive Date: 20220915
  Receipt Date: 20221110
  Transmission Date: 20230113
  Serious: No
  Sender: FDA-Public Use
  Company Number: US-BEH-2022149450

PATIENT
  Sex: Female

DRUGS (4)
  1. HIZENTRA [Suspect]
     Active Substance: HUMAN IMMUNOGLOBULIN G
     Indication: Immunodeficiency common variable
     Dosage: 10 GRAM, QW
     Route: 058
     Dates: start: 20211123
  2. HIZENTRA [Suspect]
     Active Substance: HUMAN IMMUNOGLOBULIN G
     Indication: Ovarian cancer
     Dosage: 10 GRAM, QW
     Route: 058
     Dates: start: 20211028
  3. HIZENTRA [Suspect]
     Active Substance: HUMAN IMMUNOGLOBULIN G
     Dosage: 10 GRAM, QW
     Route: 058
     Dates: start: 202111
  4. NIRAPARIB [Suspect]
     Active Substance: NIRAPARIB
     Dosage: UNK
     Route: 065
     Dates: start: 2022

REACTIONS (8)
  - Platelet count decreased [Unknown]
  - Headache [Unknown]
  - Vomiting [Unknown]
  - Fatigue [Unknown]
  - Nail bed infection [Recovered/Resolved]
  - Onychalgia [Recovered/Resolved]
  - No adverse event [Unknown]
  - Off label use [Unknown]
